FAERS Safety Report 8693530 (Version 2)
Quarter: 2012Q4

REPORT INFORMATION
  Report Type: 
  Country: IT (occurrence: IT)
  Receive Date: 20120730
  Receipt Date: 20121024
  Transmission Date: 20130627
  Serious: Yes (Other)
  Sender: FDA-Public Use
  Company Number: IT-ELI_LILLY_AND_COMPANY-IT201207004540

PATIENT
  Age: 62 Year
  Sex: Male

DRUGS (3)
  1. BYETTA [Suspect]
     Indication: DIABETES MELLITUS
     Dosage: 10 ug, bid
     Dates: start: 200805
  2. METFORMIN [Concomitant]
     Indication: DIABETES MELLITUS
  3. COAPROVEL [Concomitant]
     Indication: HYPERTENSION

REACTIONS (2)
  - Colorectal cancer [Recovered/Resolved]
  - Weight decreased [Unknown]
